FAERS Safety Report 10044763 (Version 1)
Quarter: 2014Q1

REPORT INFORMATION
  Report Type: Spontaneous
  Country: US (occurrence: None)
  Receive Date: 20140306
  Receipt Date: 20140306
  Transmission Date: 20141002
  Serious: Yes (Other)
  Sender: FDA-Public Use
  Company Number: 163-21880-13053564

PATIENT
  Age: 62 Year
  Sex: Male
  Weight: 98.5 kg

DRUGS (1)
  1. REVLIMID [Suspect]
     Indication: CHRONIC LYMPHOCYTIC LEUKAEMIA
     Route: 048
     Dates: start: 20130328, end: 20130521

REACTIONS (6)
  - Neutrophil count decreased [None]
  - White blood cell count decreased [None]
  - Lymphadenopathy [None]
  - Fatigue [None]
  - Dyspnoea [None]
  - Abdominal pain upper [None]
